FAERS Safety Report 10656690 (Version 5)
Quarter: 2015Q1

REPORT INFORMATION
  Report Type: Spontaneous
  Country: TR (occurrence: TR)
  Receive Date: 20141217
  Receipt Date: 20150111
  Transmission Date: 20150720
  Serious: Yes (Death, Hospitalization, Other)
  Sender: FDA-Public Use
  Company Number: TR-AMGEN-TURSP2014097203

PATIENT
  Age: 77 Year
  Sex: Female

DRUGS (4)
  1. VITAMIN B12 [Concomitant]
     Active Substance: CYANOCOBALAMIN
     Dosage: UNK
  2. BIZMOPEN [Concomitant]
     Dosage: UNK
  3. ENBREL [Suspect]
     Active Substance: ETANERCEPT
     Indication: PAIN
     Dosage: 50 MG, WEEKLY
     Route: 058
     Dates: start: 20141028, end: 20141127
  4. LODINE [Concomitant]
     Active Substance: ETODOLAC
     Dosage: UNK

REACTIONS (8)
  - Cough [Not Recovered/Not Resolved]
  - Interstitial lung disease [Fatal]
  - Septic shock [Unknown]
  - Anaemia [Not Recovered/Not Resolved]
  - Diffuse alveolar damage [Fatal]
  - Pneumonia [Not Recovered/Not Resolved]
  - Asthenia [Not Recovered/Not Resolved]
  - Tuberculosis [Not Recovered/Not Resolved]

NARRATIVE: CASE EVENT DATE: 2014
